FAERS Safety Report 18983308 (Version 4)
Quarter: 2021Q2

REPORT INFORMATION
  Report Type: Report from Study
  Country: MX (occurrence: MX)
  Receive Date: 20210308
  Receipt Date: 20210406
  Transmission Date: 20210717
  Serious: Yes (Death, Hospitalization, Other)
  Sender: FDA-Public Use
  Company Number: MX-SEATTLE GENETICS-2020SGN05088

PATIENT
  Age: 65 Year
  Sex: Male
  Weight: 73 kg

DRUGS (2)
  1. BRENTUXIMAB VEDOTIN [Suspect]
     Active Substance: BRENTUXIMAB VEDOTIN
     Indication: HODGKIN^S DISEASE
     Dosage: 150 MILLIGRAM
     Route: 042
     Dates: start: 20200918
  2. BRENTUXIMAB VEDOTIN [Suspect]
     Active Substance: BRENTUXIMAB VEDOTIN
     Dosage: UNK
     Route: 065

REACTIONS (19)
  - Blood potassium decreased [Unknown]
  - Syncope [Unknown]
  - Hypophagia [Unknown]
  - Somnolence [Unknown]
  - Decreased appetite [Unknown]
  - Acute kidney injury [Unknown]
  - Loss of consciousness [Unknown]
  - Oxygen saturation decreased [Unknown]
  - Disseminated varicella zoster virus infection [Unknown]
  - Skin lesion [Unknown]
  - Eating disorder [Unknown]
  - Nausea [Unknown]
  - Neurological infection [Fatal]
  - Meningoencephalitis herpetic [Unknown]
  - Herpes zoster [Unknown]
  - Pneumonia [Not Recovered/Not Resolved]
  - Depressed level of consciousness [Unknown]
  - Agitation [Unknown]
  - Fatigue [Unknown]

NARRATIVE: CASE EVENT DATE: 20210223
